FAERS Safety Report 23976775 (Version 2)
Quarter: 2024Q3

REPORT INFORMATION
  Report Type: Spontaneous
  Country: US (occurrence: US)
  Receive Date: 20240614
  Receipt Date: 20240716
  Transmission Date: 20241017
  Serious: No
  Sender: CALLIDITAS THERAPEUTICS
  Company Number: US-Calliditas-2024CAL00959

PATIENT
  Age: 62 Year
  Sex: Female
  Weight: 99.3 kg

DRUGS (1)
  1. TARPEYO [Suspect]
     Active Substance: BUDESONIDE
     Indication: IgA nephropathy
     Route: 048
     Dates: start: 20240314

REACTIONS (5)
  - Weight increased [Unknown]
  - Increased appetite [Unknown]
  - Blood glucose increased [Unknown]
  - Tremor [Unknown]
  - Insomnia [Unknown]
